FAERS Safety Report 24681908 (Version 1)
Quarter: 2024Q4

REPORT INFORMATION
  Report Type: Spontaneous
  Country: JP (occurrence: JP)
  Receive Date: 20241130
  Receipt Date: 20241130
  Transmission Date: 20250115
  Serious: Yes (Other)
  Sender: ABBVIE
  Company Number: JP-ABBVIE-6027445

PATIENT
  Sex: Male

DRUGS (1)
  1. LUMIGAN [Suspect]
     Active Substance: BIMATOPROST
     Indication: Angle closure glaucoma
     Dosage: OPHTALMIC SOLUTION 0.03%,?BOTH EYES
     Route: 047

REACTIONS (1)
  - Neovascular age-related macular degeneration [Unknown]
